FAERS Safety Report 25607677 (Version 2)
Quarter: 2025Q3

REPORT INFORMATION
  Report Type: Spontaneous
  Country: US (occurrence: US)
  Receive Date: 20250725
  Receipt Date: 20250915
  Transmission Date: 20251021
  Serious: Yes (Other)
  Sender: AMGEN
  Company Number: US-AMGEN-USASP2025144960

PATIENT
  Age: 58 Year
  Sex: Female

DRUGS (5)
  1. TEPEZZA [Suspect]
     Active Substance: TEPROTUMUMAB-TRBW
     Indication: Endocrine ophthalmopathy
     Route: 040
     Dates: start: 20250404
  2. TEPEZZA [Suspect]
     Active Substance: TEPROTUMUMAB-TRBW
     Dosage: 1880 MILLIGRAM/KILOGRAM, Q3WK (20MG/KG EVERY 3 WEEKS )
     Route: 040
     Dates: start: 20250425
  3. TEPEZZA [Suspect]
     Active Substance: TEPROTUMUMAB-TRBW
     Dosage: 1880 MILLIGRAM/KILOGRAM, Q3WK (20MG/KG EVERY 3 WEEKS )
     Route: 040
     Dates: start: 20250516
  4. TEPEZZA [Suspect]
     Active Substance: TEPROTUMUMAB-TRBW
     Dosage: 1880 MILLIGRAM/KILOGRAM, Q3WK (20MG/KG EVERY 3 WEEKS )
     Route: 040
     Dates: start: 20250606
  5. TEPEZZA [Suspect]
     Active Substance: TEPROTUMUMAB-TRBW
     Dosage: 1880 MILLIGRAM/KILOGRAM, Q3WK, FIFTH DOSE (20MG/KG EVERY 3 WEEKS)
     Route: 040
     Dates: start: 20250627

REACTIONS (1)
  - Hypoacusis [Not Recovered/Not Resolved]

NARRATIVE: CASE EVENT DATE: 20250404
